FAERS Safety Report 22958504 (Version 5)
Quarter: 2023Q4

REPORT INFORMATION
  Report Type: Report from Study
  Country: US (occurrence: US)
  Receive Date: 20230919
  Receipt Date: 20231207
  Transmission Date: 20240109
  Serious: No
  Sender: FDA-Public Use
  Company Number: US-002147023-NVSC2023US201339

PATIENT
  Sex: Male

DRUGS (1)
  1. LEQVIO [Suspect]
     Active Substance: INCLISIRAN SODIUM
     Indication: Product used for unknown indication
     Dosage: UNK
     Route: 058
     Dates: start: 20230609

REACTIONS (8)
  - Blood triglycerides increased [Unknown]
  - Chest pain [Unknown]
  - Blood cholesterol decreased [Unknown]
  - Cough [Unknown]
  - Pain in extremity [Unknown]
  - Injection site inflammation [Unknown]
  - Constipation [Unknown]
  - Injection site pain [Unknown]
